FAERS Safety Report 21423471 (Version 1)
Quarter: 2022Q4

REPORT INFORMATION
  Report Type: Spontaneous
  Country: US (occurrence: None)
  Receive Date: 20221007
  Receipt Date: 20221007
  Transmission Date: 20230113
  Serious: Yes (unspecified)
  Sender: FDA-Public Use
  Company Number: None

PATIENT
  Age: 25 Year
  Sex: Female
  Weight: 60.75 kg

DRUGS (3)
  1. DEXMETHYLPHENIDATE HYDROCHLORIDE [Suspect]
     Active Substance: DEXMETHYLPHENIDATE HYDROCHLORIDE
     Indication: Attention deficit hyperactivity disorder
     Dosage: OTHER QUANTITY : 1 CAPSULE(S);?
     Route: 048
     Dates: start: 20220525, end: 20220820
  2. ADDERALL [Concomitant]
     Active Substance: AMPHETAMINE ASPARTATE\AMPHETAMINE SULFATE\DEXTROAMPHETAMINE SACCHARATE\DEXTROAMPHETAMINE SULFATE
  3. Wellbutrin XL 300mg (bupropion) [Concomitant]

REACTIONS (15)
  - Product substitution issue [None]
  - Therapeutic response changed [None]
  - Feeling abnormal [None]
  - Condition aggravated [None]
  - Depression [None]
  - Feeling of despair [None]
  - Suicidal ideation [None]
  - Fatigue [None]
  - Fatigue [None]
  - Apathy [None]
  - Derealisation [None]
  - Anhedonia [None]
  - Disturbance in attention [None]
  - Paradoxical drug reaction [None]
  - Paranoia [None]

NARRATIVE: CASE EVENT DATE: 20220815
